FAERS Safety Report 11409492 (Version 1)
Quarter: 2015Q3

REPORT INFORMATION
  Report Type: Spontaneous
  Country: IL (occurrence: IL)
  Receive Date: 20150824
  Receipt Date: 20150824
  Transmission Date: 20151125
  Serious: Yes (Hospitalization, Other)
  Sender: FDA-Public Use
  Company Number: IL-TEVA-588461ISR

PATIENT
  Age: 43 Year
  Sex: Female

DRUGS (5)
  1. VINCRISTINE [Suspect]
     Active Substance: VINCRISTINE
     Indication: PRIMITIVE NEUROECTODERMAL TUMOUR METASTATIC
     Dosage: 1.5 MG/M2 ON DAY 1
     Route: 042
  2. IFOSFAMIDE. [Suspect]
     Active Substance: IFOSFAMIDE
     Indication: PRIMITIVE NEUROECTODERMAL TUMOUR METASTATIC
     Dosage: 3 G/M2 ON DAYS 1 TO 3
     Route: 042
  3. MESNA. [Concomitant]
     Active Substance: MESNA
     Dosage: EVERY 21 DAYS
     Route: 042
  4. DOXORUBICIN [Suspect]
     Active Substance: DOXORUBICIN
     Indication: PRIMITIVE NEUROECTODERMAL TUMOUR METASTATIC
     Dosage: 20 MG/M2 ON DAYS 1 TO 3
     Route: 042
  5. ETOPOSIDE. [Suspect]
     Active Substance: ETOPOSIDE
     Indication: PRIMITIVE NEUROECTODERMAL TUMOUR METASTATIC
     Dosage: 150 MG/M2 ON DAYS 1 TO 3
     Route: 042

REACTIONS (4)
  - Encephalopathy [Recovered/Resolved]
  - Febrile neutropenia [Recovered/Resolved]
  - Acute kidney injury [Recovered/Resolved]
  - Diarrhoea [Recovered/Resolved]
